FAERS Safety Report 6903221-9 (Version None)
Quarter: 2010Q3

REPORT INFORMATION
  Report Type: 
  Country: None (occurrence: None)
  Receive Date: 20100803
  Receipt Date: 20080801
  Transmission Date: 20110219
  Serious: No
  Sender: FDA-Public Use
  Company Number: US-PFIZER INC-2008064992

PATIENT
  Sex: Female
  Weight: 59.09 kg

DRUGS (5)
  1. LYRICA [Suspect]
     Indication: FIBROMYALGIA
     Dates: start: 20080501
  2. TOPROL-XL [Concomitant]
  3. RELPAX [Concomitant]
  4. CYMBALTA [Concomitant]
  5. WELLBUTRIN [Concomitant]

REACTIONS (3)
  - FATIGUE [None]
  - TREMOR [None]
  - WEIGHT INCREASED [None]
